FAERS Safety Report 7388471-2 (Version None)
Quarter: 2011Q2

REPORT INFORMATION
  Report Type: 
  Country: None (occurrence: None)
  Receive Date: 20110401
  Receipt Date: 20110329
  Transmission Date: 20111010
  Serious: Yes (Life-Threatening, Hospitalization, Other)
  Sender: FDA-Public Use
  Company Number: PHHY2011FR25908

PATIENT
  Sex: Female

DRUGS (7)
  1. LASIX [Concomitant]
  2. IRBESARTAN [Concomitant]
  3. ACETAMINOPHEN AND TRAMADOL HCL [Concomitant]
  4. SPECIAFOLDINE [Concomitant]
  5. METOJECT [Interacting]
     Dosage: 15 MG, QW
     Route: 058
     Dates: start: 20100401, end: 20100610
  6. VOLTAREN [Suspect]
     Dosage: 75 MG, DAILY
     Route: 048
     Dates: end: 20100601
  7. CORTANCYL [Concomitant]
     Dosage: 40 MG, UNK

REACTIONS (7)
  - PSEUDOMONAL SEPSIS [None]
  - PANCYTOPENIA [None]
  - WEIGHT DECREASED [None]
  - MUCOSAL ULCERATION [None]
  - PYREXIA [None]
  - WOUND INFECTION PSEUDOMONAS [None]
  - POLYARTHRITIS [None]
